FAERS Safety Report 5495826-X (Version None)
Quarter: 2007Q4

REPORT INFORMATION
  Report Type: 
  Country: None (occurrence: None)
  Receive Date: 20071025
  Receipt Date: 20061030
  Transmission Date: 20080405
  Serious: No
  Sender: FDA-Public Use
  Company Number: A0625356A

PATIENT
  Age: 82 Year
  Sex: Female

DRUGS (3)
  1. ADVAIR DISKUS 100/50 [Suspect]
     Indication: CHRONIC OBSTRUCTIVE PULMONARY DISEASE
     Dosage: 1PUFF TWICE PER DAY
     Route: 055
  2. ALBUTEROL [Concomitant]
  3. CLARITHROMYCIN [Concomitant]
     Indication: MYCOPLASMA INFECTION
     Dates: start: 20061024

REACTIONS (5)
  - DIZZINESS [None]
  - MUSCLE SPASMS [None]
  - NECK PAIN [None]
  - PALPITATIONS [None]
  - WHEEZING [None]
